FAERS Safety Report 11045704 (Version 1)
Quarter: 2015Q2

REPORT INFORMATION
  Report Type: Spontaneous
  Country: FR (occurrence: FR)
  Receive Date: 20150417
  Receipt Date: 20150417
  Transmission Date: 20150821
  Serious: Yes (Other)
  Sender: FDA-Public Use
  Company Number: FR-ASTRAZENECA-2015SE05724

PATIENT
  Age: 954 Month
  Sex: Female

DRUGS (3)
  1. LAMALINE [Suspect]
     Active Substance: ACETAMINOPHEN\CAFFEINE\OPIUM
     Indication: ARTHRALGIA
     Route: 065
  2. INEXIUM [Suspect]
     Active Substance: ESOMEPRAZOLE
     Route: 048
  3. APRANAX [Suspect]
     Active Substance: NAPROXEN
     Indication: ARTHRALGIA
     Dosage: NON AZ PRODUCT
     Route: 065

REACTIONS (1)
  - Acute myeloid leukaemia [Unknown]
